FAERS Safety Report 8846117 (Version 2)
Quarter: 2013Q1

REPORT INFORMATION
  Report Type: Spontaneous
  Country: JP (occurrence: JP)
  Receive Date: 20121017
  Receipt Date: 20130214
  Transmission Date: 20140127
  Serious: Yes (Other)
  Sender: FDA-Public Use
  Company Number: JP-ELI_LILLY_AND_COMPANY-JP201205005352

PATIENT
  Age: 75 Year
  Sex: Male

DRUGS (3)
  1. FORTEO [Suspect]
     Indication: OSTEOPOROSIS
     Dosage: UNK
     Route: 058
     Dates: start: 201011
  2. FORTEO [Suspect]
     Dosage: UNK
     Route: 058
     Dates: start: 201111, end: 201205
  3. FORTEO [Suspect]
     Dosage: UNK
     Route: 058
     Dates: start: 201205

REACTIONS (3)
  - Hypoaesthesia [Unknown]
  - Headache [Recovered/Resolved]
  - Pain [Unknown]
